FAERS Safety Report 6907649-2 (Version None)
Quarter: 2010Q3

REPORT INFORMATION
  Report Type: 
  Country: None (occurrence: None)
  Receive Date: 20100805
  Receipt Date: 20100726
  Transmission Date: 20110219
  Serious: Yes (Hospitalization)
  Sender: FDA-Public Use
  Company Number: FR-WYE-G06457010

PATIENT
  Sex: Male

DRUGS (7)
  1. EFFEXOR XR [Suspect]
     Indication: DEPRESSION
     Dosage: OVERDOSE AMOUNT= 3375 MG
     Route: 048
     Dates: start: 20100531, end: 20100531
  2. BACLOFEN [Suspect]
     Indication: DEPRESSION
     Dosage: OVERDOSE AMOUNT= 220 MG
     Route: 048
     Dates: start: 20100531, end: 20100531
  3. ALCOHOL [Suspect]
     Dosage: OVERDOSE AMOUNT= SEVERAL DRINGS OF WHISKY ALCOHOL AND 3 BOTTLES OF WINE
     Route: 048
     Dates: start: 20100531, end: 20100531
  4. NOCTAMID [Suspect]
     Dosage: OVERDOSE AMOUNT= 18 MG
     Route: 048
     Dates: start: 20100531, end: 20100531
  5. NEULEPTIL [Suspect]
     Dosage: OVERDOSE AMOUNT= 30 MG
     Route: 048
     Dates: start: 20100531, end: 20100531
  6. ESCITALOPRAM OXALATE [Suspect]
     Dosage: OVERDOSE AMOUNT= 440 MG
     Route: 048
     Dates: start: 20100531, end: 20100531
  7. ZOLPIDEM [Suspect]
     Indication: DEPRESSION
     Dosage: OVERDOSE AMOUNT= 50 MG
     Route: 048
     Dates: start: 20100531, end: 20100531

REACTIONS (8)
  - COMA [None]
  - CONFUSIONAL STATE [None]
  - HALLUCINATION, VISUAL [None]
  - INTENTIONAL OVERDOSE [None]
  - PERIPHERAL MOTOR NEUROPATHY [None]
  - RENAL FAILURE ACUTE [None]
  - RHABDOMYOLYSIS [None]
  - SUICIDE ATTEMPT [None]
